FAERS Safety Report 9128076 (Version 1)
Quarter: 2013Q1

REPORT INFORMATION
  Report Type: Spontaneous
  Country: ZA (occurrence: ZA)
  Receive Date: 20130228
  Receipt Date: 20130228
  Transmission Date: 20140127
  Serious: Yes (Hospitalization)
  Sender: FDA-Public Use
  Company Number: ZA-JNJFOC-20130209994

PATIENT
  Sex: Male

DRUGS (1)
  1. REVELLEX [Suspect]
     Indication: COLITIS ULCERATIVE
     Route: 042
     Dates: start: 20120116

REACTIONS (2)
  - Pyrexia [Unknown]
  - Colectomy [Unknown]
